FAERS Safety Report 8152012-2 (Version None)
Quarter: 2012Q1

REPORT INFORMATION
  Report Type: 
  Country: None (occurrence: None)
  Receive Date: 20120221
  Receipt Date: 20120218
  Transmission Date: 20120608
  Serious: No
  Sender: FDA-Public Use
  Company Number: US-PFIZER INC-2012043769

PATIENT
  Sex: Male
  Weight: 120 kg

DRUGS (6)
  1. RAMIPRIL [Suspect]
     Indication: HYPERTENSION
     Dosage: UNK
  2. METOPROLOL [Concomitant]
     Dosage: 100 MG, 2X/DAY
  3. TIKOSYN [Concomitant]
     Indication: ARRHYTHMIA
     Dosage: 0.5 MG, 2X/DAY
     Dates: start: 20091201
  4. LISINOPRIL [Suspect]
     Indication: HYPERTENSION
     Dosage: 20 MG, 2X/DAY
  5. WARFARIN [Concomitant]
     Indication: ARRHYTHMIA
     Dosage: 10 MG, DAILY
  6. LISINOPRIL [Suspect]
     Dosage: 40 MG, 2X/DAY

REACTIONS (1)
  - DYSPEPSIA [None]
